FAERS Safety Report 4742750-3 (Version None)
Quarter: 2005Q3

REPORT INFORMATION
  Report Type: 
  Country: None (occurrence: None)
  Receive Date: 20050810
  Receipt Date: 20050810
  Transmission Date: 20060218
  Serious: Yes (Hospitalization, Disabling)
  Sender: FDA-Public Use
  Company Number: None

PATIENT
  Age: 52 Year
  Sex: Male
  Weight: 70.7611 kg

DRUGS (3)
  1. DOCETAXEL [Suspect]
     Indication: BLADDER CANCER
     Dosage: 75-100 MG/M2    Q 21 DAYS   INTRAVENOU
     Route: 042
     Dates: start: 20050421, end: 20050802
  2. ZOMETA [Concomitant]
  3. CIPROFLOXACIN HCL [Concomitant]

REACTIONS (6)
  - BURNING SENSATION [None]
  - DYSPHAGIA [None]
  - EYE DISORDER [None]
  - LACRIMATION INCREASED [None]
  - ORAL MUCOSAL EXFOLIATION [None]
  - SKIN EXFOLIATION [None]
